FAERS Safety Report 12882412 (Version 1)
Quarter: 2016Q4

REPORT INFORMATION
  Report Type: Spontaneous
  Country: IT (occurrence: IT)
  Receive Date: 20161025
  Receipt Date: 20161025
  Transmission Date: 20170207
  Serious: Yes (Other)
  Sender: FDA-Public Use
  Company Number: PHHY2016IT145268

PATIENT
  Age: 51 Year
  Sex: Male

DRUGS (1)
  1. VOLTAREN [Suspect]
     Active Substance: DICLOFENAC SODIUM
     Indication: BACK PAIN
     Dosage: 100 MG, TOTAL
     Route: 054
     Dates: start: 20160301, end: 20160301

REACTIONS (3)
  - Angioedema [Recovering/Resolving]
  - Asthenia [Recovering/Resolving]
  - Head discomfort [Recovering/Resolving]

NARRATIVE: CASE EVENT DATE: 20160301
